FAERS Safety Report 16497922 (Version 2)
Quarter: 2019Q2

REPORT INFORMATION
  Report Type: Spontaneous
  Country: US (occurrence: US)
  Receive Date: 20190628
  Receipt Date: 20190628
  Transmission Date: 20190711
  Serious: No
  Sender: FDA-Public Use
  Company Number: US-ROCHE-2195553

PATIENT
  Sex: Female

DRUGS (6)
  1. ACTEMRA [Suspect]
     Active Substance: TOCILIZUMAB
     Indication: RHEUMATOID ARTHRITIS
     Route: 042
  2. ORENCIA [Concomitant]
     Active Substance: ABATACEPT
  3. HUMIRA [Concomitant]
     Active Substance: ADALIMUMAB
  4. XELJANZ XR [Concomitant]
     Active Substance: TOFACITINIB CITRATE
     Route: 048
  5. METHOTREXATE. [Concomitant]
     Active Substance: METHOTREXATE
  6. ENBREL [Concomitant]
     Active Substance: ETANERCEPT

REACTIONS (2)
  - Drug ineffective [Unknown]
  - No adverse event [Unknown]
